FAERS Safety Report 6013788 (Version 2)
Quarter: 2012Q4

REPORT INFORMATION
  Report Type: 
  Country: NL (occurrence: NL)
  Receive Date: 20060328
  Receipt Date: 20121207
  Transmission Date: 20130627
  Serious: Yes (Hospitalization, Other)
  Sender: FDA-Public Use
  Company Number: NL-JNJFOC-20060203408

PATIENT
  Age: 16 Year
  Sex: Male

DRUGS (6)
  1. IBUPROFEN [Suspect]
     Indication: CONCUSSION
     Dosage: 500 mg, 3 in 1 day, rectal, for 2 days
     Route: 065
  2. IBUPROFEN [Suspect]
     Indication: CONCUSSION
     Dosage: 400 mg, 3 in 1 day, oral, for 3 days
     Route: 065
  3. IBUPROFEN [Suspect]
     Indication: JAW FRACTURE
     Dosage: 500 mg, 3 in 1 day, rectal, for 2 days
     Route: 065
  4. IBUPROFEN [Suspect]
     Indication: JAW FRACTURE
     Dosage: 400 mg, 3 in 1 day, oral, for 3 days
     Route: 065
  5. AMOXICILLIN [Interacting]
     Indication: JAW FRACTURE
     Dosage: 500 mg, 4 in 1 day, IV, for 2 days
     Route: 065
  6. AMOXICILLIN [Interacting]
     Indication: JAW FRACTURE
     Dosage: 500 mg, 3 in 1 day, oral, for 3 days
     Route: 065

REACTIONS (4)
  - Drug interaction [Recovered/Resolved]
  - Haemolytic anaemia [Recovered/Resolved]
  - Thrombocytopenia [Recovered/Resolved]
  - Enterocolitis haemorrhagic [Recovered/Resolved]
